FAERS Safety Report 8199136-1 (Version None)
Quarter: 2012Q1

REPORT INFORMATION
  Report Type: 
  Country: None (occurrence: None)
  Receive Date: 20120306
  Receipt Date: 20120220
  Transmission Date: 20120608
  Serious: Yes (Other)
  Sender: FDA-Public Use
  Company Number: FK201200565

PATIENT
  Age: 19 Year
  Sex: Male

DRUGS (2)
  1. PEGFILGRASTIM (PEGFILGRASTIM) (PEGFILGRASTIM) [Suspect]
     Indication: BONE SARCOMA
     Dosage: SINGLE CYCLE OF TTREAMENT
  2. METHOTREXATE [Suspect]
     Indication: BONE SARCOMA
     Dosage: HIGH-DOSE

REACTIONS (2)
  - MYELODYSPLASTIC SYNDROME [None]
  - ACUTE MYELOID LEUKAEMIA [None]
